FAERS Safety Report 14665454 (Version 1)
Quarter: 2018Q1

REPORT INFORMATION
  Report Type: Spontaneous
  Country: FR (occurrence: FR)
  Receive Date: 20180321
  Receipt Date: 20180321
  Transmission Date: 20180509
  Serious: Yes (Hospitalization)
  Sender: FDA-Public Use
  Company Number: FR-TEVA-2018-FR-869590

PATIENT
  Age: 64 Year
  Sex: Female
  Weight: 78 kg

DRUGS (1)
  1. CARBOPLATIN. [Suspect]
     Active Substance: CARBOPLATIN
     Indication: LUNG ADENOCARCINOMA
     Route: 041

REACTIONS (4)
  - Hypotension [Recovered/Resolved]
  - Anaphylactic shock [Recovered/Resolved]
  - Rash [Recovered/Resolved]
  - Angioedema [Recovered/Resolved]
